FAERS Safety Report 7327525-3 (Version None)
Quarter: 2011Q1

REPORT INFORMATION
  Report Type: 
  Country: None (occurrence: None)
  Receive Date: 20110303
  Receipt Date: 20110218
  Transmission Date: 20110831
  Serious: No
  Sender: FDA-Public Use
  Company Number: US-BIOGENIDEC-2011BI006831

PATIENT
  Sex: Male

DRUGS (4)
  1. TYSABRI [Suspect]
     Indication: MULTIPLE SCLEROSIS
     Route: 042
     Dates: start: 20100713
  2. TYSABRI [Suspect]
     Route: 042
     Dates: start: 20080107, end: 20091222
  3. AVONEX [Concomitant]
     Indication: MULTIPLE SCLEROSIS
     Route: 030
     Dates: start: 20100108
  4. AVONEX [Concomitant]
     Route: 030
     Dates: start: 20040903

REACTIONS (1)
  - MOBILITY DECREASED [None]
